FAERS Safety Report 25288393 (Version 2)
Quarter: 2025Q2

REPORT INFORMATION
  Report Type: Report from Study
  Country: GB (occurrence: GB)
  Receive Date: 20250509
  Receipt Date: 20250529
  Transmission Date: 20250717
  Serious: Yes (Other)
  Sender: VERTEX
  Company Number: GB-VERTEX PHARMACEUTICALS-2025-007077

PATIENT
  Age: 16 Year
  Sex: Female
  Weight: 50 kg

DRUGS (14)
  1. ELEXACAFTOR\IVACAFTOR\TEZACAFTOR [Suspect]
     Active Substance: ELEXACAFTOR\IVACAFTOR\TEZACAFTOR
     Indication: Cystic fibrosis
     Dosage: TWO TABLETS ONCE IN THE MORNING 75 MG IVACAFTOR/ 50 MG TEZACAFTOR/ 100 MG ELEXACAFTOR
     Route: 048
     Dates: start: 20210621, end: 20250320
  2. KALYDECO [Suspect]
     Active Substance: IVACAFTOR
     Indication: Cystic fibrosis
     Dosage: ONE TABLET IN THE EVENING (150 MG IVACAFTOR)
     Route: 048
     Dates: start: 20210621, end: 20250320
  3. ACETAMINOPHEN\ASCORBIC ACID [Concomitant]
     Active Substance: ACETAMINOPHEN\ASCORBIC ACID
     Dosage: 2 OD
     Route: 048
  4. CREON [Concomitant]
     Active Substance: PANCRELIPASE AMYLASE\PANCRELIPASE LIPASE\PANCRELIPASE PROTEASE
     Route: 048
  5. DORNASE ALFA [Concomitant]
     Active Substance: DORNASE ALFA
     Dosage: UNK, QD
     Route: 055
  6. AMOXICILLIN\CLAVULANATE POTASSIUM [Concomitant]
     Active Substance: AMOXICILLIN\CLAVULANATE POTASSIUM
     Dosage: 375 MILLIGRAM, BID
     Route: 048
  7. BECLOMETHASONE DIPROPIONATE [Concomitant]
     Active Substance: BECLOMETHASONE DIPROPIONATE
     Dosage: 2 PUFFS
  8. ALBUTEROL [Concomitant]
     Active Substance: ALBUTEROL
  9. OMEPRAZOLE [Concomitant]
     Active Substance: OMEPRAZOLE
     Dosage: UNK, QD
     Route: 048
  10. URSODIOL [Concomitant]
     Active Substance: URSODIOL
     Dosage: UNK, BID
  11. SODIUM CHLORIDE [Concomitant]
     Active Substance: SODIUM CHLORIDE
     Dosage: UNK, BID
     Route: 048
  12. SENNA [Concomitant]
     Active Substance: SENNOSIDES
     Dosage: UNK, QD
     Route: 048
  13. DESOGESTREL [Concomitant]
     Active Substance: DESOGESTREL
     Route: 048
  14. INSULIN NOS [Concomitant]
     Active Substance: INSULIN NOS

REACTIONS (5)
  - Blood alkaline phosphatase increased [Recovering/Resolving]
  - Gamma-glutamyltransferase increased [Recovered/Resolved]
  - Blood bilirubin increased [Recovering/Resolving]
  - Alanine aminotransferase increased [Recovering/Resolving]
  - Aspartate aminotransferase increased [Recovering/Resolving]

NARRATIVE: CASE EVENT DATE: 20250319
